FAERS Safety Report 7576491-4 (Version None)
Quarter: 2011Q2

REPORT INFORMATION
  Report Type: 
  Country: None (occurrence: None)
  Receive Date: 20110628
  Receipt Date: 20091122
  Transmission Date: 20111010
  Serious: Yes (Death, Hospitalization, Other)
  Sender: FDA-Public Use
  Company Number: US-BAYER-200940269NA

PATIENT
  Age: 49 Year
  Sex: Male
  Weight: 78 kg

DRUGS (46)
  1. PRINIVIL [Concomitant]
     Dosage: 20 MG, BID
     Route: 048
  2. GLYBURIDE [Concomitant]
     Dosage: 10 MG, BID
     Route: 048
  3. INTEGRILIN [Concomitant]
     Dosage: 180 MG
     Route: 042
     Dates: start: 20020403, end: 20020403
  4. NITROGLYCERIN [Concomitant]
     Dosage: 1 INCH BID
     Route: 062
     Dates: start: 20020403
  5. ANCEF [Concomitant]
     Dosage: 1 GRAM
     Route: 042
     Dates: start: 20020403
  6. EPINEPHRINE [Concomitant]
     Dosage: VARYING DOSES
     Route: 042
     Dates: start: 20020409, end: 20020409
  7. NOREPINEPHRINE BITARTRATE [Concomitant]
     Dosage: VARYING DOSES
     Route: 042
     Dates: start: 20020404, end: 20020404
  8. PHENYLEPHRINE HCL [Concomitant]
     Dosage: VARYING DOSES
     Route: 042
     Dates: start: 20020404, end: 20020404
  9. ASPIRIN [Concomitant]
     Dosage: 325 MG, QD
  10. SODIUM NITROPRUSSIDE [Concomitant]
     Dosage: UNK
     Route: 042
     Dates: start: 20020404
  11. EPINEPHRINE [Concomitant]
     Dosage: VARYING DOSES
     Route: 042
     Dates: start: 20020404, end: 20020404
  12. PROTAMINE SULFATE [Concomitant]
     Dosage: 550 MG
     Route: 042
     Dates: start: 20020410, end: 20020410
  13. OXILAN-300 [Concomitant]
     Dosage: 89 CC
     Route: 042
     Dates: start: 20020403, end: 20020403
  14. HYDROCHLOROTHIAZIDE [Concomitant]
  15. ZANTAC [Concomitant]
     Dosage: 150 MG, BID
     Route: 048
  16. LIDOCAINE [Concomitant]
     Dosage: VARYING DOSES
     Route: 042
     Dates: start: 20020409, end: 20020409
  17. BUMEX [Concomitant]
     Dosage: 2 MG AS NEEDED
     Route: 042
     Dates: start: 20020406
  18. MANNITOL [Concomitant]
     Dosage: 12.5 GM
     Route: 042
     Dates: start: 20020410, end: 20020410
  19. METFORMIN HCL [Concomitant]
     Dosage: 1500 MG, BID
  20. AMIODARONE HCL [Concomitant]
     Dosage: VARYING DOSES
     Route: 042
     Dates: start: 20020409, end: 20020409
  21. MILRINONE [Concomitant]
     Dosage: VARYING DOSES
     Route: 042
     Dates: start: 20020404, end: 20020404
  22. MILRINONE [Concomitant]
     Dosage: VARYING DOSES
     Route: 042
     Dates: start: 20020409, end: 20020409
  23. LASIX [Concomitant]
     Dosage: 40 MG
     Route: 042
     Dates: start: 20020410
  24. DOBUTAMINE HCL [Concomitant]
     Dosage: VARYING DOSES
     Route: 042
     Dates: start: 20020409, end: 20020409
  25. CALCIUM CHLORIDE [Concomitant]
     Dosage: 500 MG
     Route: 042
     Dates: start: 20020404, end: 20020404
  26. TRASYLOL [Suspect]
     Indication: VENTRICULAR ASSIST DEVICE INSERTION
     Dosage: LOADING DOSE 200 CC
     Route: 042
     Dates: start: 20020410, end: 20020410
  27. ATENOLOL [Concomitant]
     Dosage: 25 MG, QD
     Route: 048
     Dates: start: 20020403
  28. LOVENOX [Concomitant]
     Dosage: UNK
     Route: 058
     Dates: start: 20020403
  29. PHENYLEPHRINE HCL [Concomitant]
     Dosage: VARYING DOSES
     Route: 042
     Dates: start: 20020409, end: 20020409
  30. DOBUTAMINE HCL [Concomitant]
     Dosage: VARYING DOSES
     Route: 042
     Dates: start: 20020404, end: 20020404
  31. PROTAMINE SULFATE [Concomitant]
     Dosage: 25 MG AS NEEDED
     Route: 042
     Dates: start: 20020404, end: 20020404
  32. PROTAMINE SULFATE [Concomitant]
     Dosage: 25 MG AS NEEDED
     Route: 042
     Dates: start: 20020409, end: 20020409
  33. SOLU-MEDROL [Concomitant]
     Dosage: UNK
     Route: 042
     Dates: start: 20020410, end: 20020410
  34. LOPRESSOR [Concomitant]
     Dosage: 12.5 MG, BID
     Route: 048
  35. DEMEROL [Concomitant]
     Dosage: 25 MG AS NEEDED
     Route: 042
  36. LIDOCAINE [Concomitant]
     Dosage: VARYING DOSES
     Route: 042
     Dates: start: 20020404, end: 20020404
  37. HEPARIN [Concomitant]
     Dosage: 81,000 UNITS
     Route: 042
     Dates: start: 20020410, end: 20020410
  38. BLOOD AND RELATED PRODUCTS [Concomitant]
     Dosage: 5 UNITS
     Route: 042
     Dates: start: 20020410, end: 20020410
  39. PLENDIL [Concomitant]
     Dosage: 2.5 MG, BID
     Route: 048
  40. LOPID [Concomitant]
     Dosage: 600 MG, BID
     Route: 048
  41. DIGOXIN [Concomitant]
     Dosage: VARYING DOSES
     Route: 048
     Dates: start: 20020404
  42. MEVACOR [Concomitant]
     Dosage: 40 MG, QD
     Route: 048
     Dates: start: 20020405
  43. AMIODARONE HCL [Concomitant]
     Dosage: VARYING DOSES
     Route: 042
     Dates: start: 20020404, end: 20020404
  44. DOPAMINE HCL [Concomitant]
     Dosage: VARYING DOSES
     Route: 042
     Dates: start: 20020404, end: 20020417
  45. HEPARIN [Concomitant]
     Dosage: VARYING DOSES
     Route: 042
     Dates: start: 20020404
  46. LASIX [Concomitant]
     Dosage: VARYING DOSES AS NEEDED
     Route: 042
     Dates: start: 20020404

REACTIONS (13)
  - RENAL INJURY [None]
  - STRESS [None]
  - RENAL IMPAIRMENT [None]
  - UNEVALUABLE EVENT [None]
  - INJURY [None]
  - ANHEDONIA [None]
  - FEAR [None]
  - MULTI-ORGAN FAILURE [None]
  - RENAL FAILURE [None]
  - ANXIETY [None]
  - PAIN [None]
  - DEATH [None]
  - EMOTIONAL DISTRESS [None]
